FAERS Safety Report 7626755-0 (Version None)
Quarter: 2011Q3

REPORT INFORMATION
  Report Type: 
  Country: None (occurrence: None)
  Receive Date: 20110721
  Receipt Date: 20110708
  Transmission Date: 20111222
  Serious: Yes (Hospitalization)
  Sender: FDA-Public Use
  Company Number: US-ELI_LILLY_AND_COMPANY-US201107003160

PATIENT
  Age: 64 Year
  Sex: Female

DRUGS (13)
  1. AMLODIPINE [Concomitant]
  2. HYDROCHLOROTHIAZIDE [Concomitant]
  3. INSULIN [Concomitant]
  4. CYMBALTA [Suspect]
     Indication: BIPOLAR I DISORDER
     Dosage: 30 MG, QD
  5. ISORDIL [Concomitant]
  6. SERTRALINE HYDROCHLORIDE [Concomitant]
  7. ASPIRIN [Concomitant]
  8. LISINOPRIL [Concomitant]
  9. LIPITOR [Concomitant]
  10. CIPROFLOXACIN HCL [Concomitant]
  11. GABAPENTIN [Concomitant]
  12. METFORMIN [Concomitant]
  13. OXYBUTIN [Concomitant]

REACTIONS (4)
  - DYSARTHRIA [None]
  - MUSCULAR WEAKNESS [None]
  - CEREBROVASCULAR ACCIDENT [None]
  - GASTROSTOMY TUBE INSERTION [None]
